FAERS Safety Report 5929494-7 (Version None)
Quarter: 2008Q4

REPORT INFORMATION
  Report Type: 
  Country: None (occurrence: None)
  Receive Date: 20081024
  Receipt Date: 20081016
  Transmission Date: 20090506
  Serious: Yes (Hospitalization)
  Sender: FDA-Public Use
  Company Number: A0745768A

PATIENT
  Age: 60 Year
  Sex: Male
  Weight: 70.4 kg

DRUGS (3)
  1. LAPATINIB [Suspect]
     Dosage: 1500MG PER DAY
     Route: 048
     Dates: start: 20080808
  2. CISPLATIN [Suspect]
     Dosage: 100MGM2 CYCLIC
     Route: 042
     Dates: start: 20080812
  3. RADIATION [Suspect]
     Dosage: 2GY PER DAY
     Route: 061
     Dates: start: 20080812

REACTIONS (2)
  - DEHYDRATION [None]
  - DIARRHOEA [None]
